FAERS Safety Report 4808381-1 (Version None)
Quarter: 2005Q4

REPORT INFORMATION
  Report Type: 
  Country: None (occurrence: None)
  Receive Date: 20051021
  Receipt Date: 20031128
  Transmission Date: 20060501
  Serious: No
  Sender: FDA-Public Use
  Company Number: FR_031203233

PATIENT
  Age: 25 Year
  Sex: Female

DRUGS (3)
  1. ZYPREXA [Suspect]
     Indication: PSYCHOTIC DISORDER
     Dosage: 7.5 MG/DAY
     Dates: start: 20031119, end: 20031121
  2. PAROXETINE HYDROCHLORIDE [Concomitant]
  3. STILNOX (ZOLPIDEM) [Concomitant]

REACTIONS (2)
  - NEUTROPENIA [None]
  - WHITE BLOOD CELL COUNT DECREASED [None]
